FAERS Safety Report 7755366-1 (Version None)
Quarter: 2011Q3

REPORT INFORMATION
  Report Type: 
  Country: None (occurrence: None)
  Receive Date: 20110914
  Receipt Date: 20110905
  Transmission Date: 20111222
  Serious: Yes (Hospitalization)
  Sender: FDA-Public Use
  Company Number: 2010003817

PATIENT
  Age: 71 Year
  Sex: Male

DRUGS (12)
  1. DIOVAN [Concomitant]
  2. AMARYL [Concomitant]
  3. PHENYTOIN [Concomitant]
  4. ALBUMIN (HUMAN) [Concomitant]
  5. ACTOS [Concomitant]
  6. SENNOSIDE (SENNOSIDE A+B) [Concomitant]
  7. MAGMITT (MAGNESIUM OXIDE) [Concomitant]
  8. LASIX [Concomitant]
  9. FAMOTIDINE [Concomitant]
  10. TARCEVA [Suspect]
     Indication: LUNG ADENOCARCINOMA METASTATIC
     Dosage: 100 MG, UID/QD, ORAL 150 MG, UID/QD, ORAL
     Route: 048
     Dates: start: 20100403
  11. TARCEVA [Suspect]
     Indication: LUNG ADENOCARCINOMA METASTATIC
     Dosage: 100 MG, UID/QD, ORAL 150 MG, UID/QD, ORAL
     Route: 048
     Dates: start: 20100409
  12. MYSLEE (ZOLPIDEM) [Concomitant]

REACTIONS (6)
  - PYREXIA [None]
  - BLOOD PRESSURE DECREASED [None]
  - OXYGEN SATURATION DECREASED [None]
  - PLEURAL EFFUSION [None]
  - ASCITES [None]
  - INTERSTITIAL LUNG DISEASE [None]
